FAERS Safety Report 8771790 (Version 2)
Quarter: 2015Q1

REPORT INFORMATION
  Report Type: Spontaneous
  Country: US (occurrence: US)
  Receive Date: 20120905
  Receipt Date: 20150113
  Transmission Date: 20150721
  Serious: No
  Sender: FDA-Public Use
  Company Number: US-009507513-1209USA000771

PATIENT
  Sex: Male
  Weight: 76.19 kg

DRUGS (1)
  1. PROPECIA [Suspect]
     Active Substance: FINASTERIDE
     Indication: ANDROGENETIC ALOPECIA
     Dosage: 1 MG, QD
     Route: 048
     Dates: start: 20100719, end: 20100915

REACTIONS (16)
  - Cognitive disorder [Not Recovered/Not Resolved]
  - Muscle atrophy [Unknown]
  - Sensory loss [Unknown]
  - Hypogonadism male [Unknown]
  - Erectile dysfunction [Unknown]
  - Asthenia [Unknown]
  - Weight decreased [Unknown]
  - Ejaculation failure [Unknown]
  - Amnesia [Not Recovered/Not Resolved]
  - Emotional disorder [Unknown]
  - Sexual dysfunction [Unknown]
  - Fatigue [Unknown]
  - Acne [Unknown]
  - Loss of libido [Unknown]
  - Testicular atrophy [Unknown]
  - Memory impairment [Unknown]

NARRATIVE: CASE EVENT DATE: 20100921
